FAERS Safety Report 17652043 (Version 1)
Quarter: 2020Q2

REPORT INFORMATION
  Report Type: Spontaneous
  Country: DE (occurrence: DE)
  Receive Date: 20200409
  Receipt Date: 20200409
  Transmission Date: 20200713
  Serious: Yes (Hospitalization)
  Sender: FDA-Public Use
  Company Number: DE-TEVA-2020-DE-1221666

PATIENT
  Age: 46 Year
  Sex: Male

DRUGS (9)
  1. AMLODIPIN [Concomitant]
     Active Substance: AMLODIPINE BESYLATE
     Dosage: 10 MG, 0.5-0-0.5-0
  2. METOPROLOL. [Concomitant]
     Active Substance: METOPROLOL
     Dosage: 95 MILLIGRAM DAILY; 47.5 MG, 1-0-1-0
  3. NAPROXEN. [Suspect]
     Active Substance: NAPROXEN
     Dosage: NK MG, NK
  4. ARCOXIA [Concomitant]
     Active Substance: ETORICOXIB
     Dosage: NK MG, IF NECESSARY
  5. JARDIANCE [Concomitant]
     Active Substance: EMPAGLIFLOZIN
     Dosage: 10 MILLIGRAM DAILY; 10 MG, 1-0-0-0
  6. FEXOFENADINE [Concomitant]
     Active Substance: FEXOFENADINE HYDROCHLORIDE
     Dosage: NK MG, 1-0-1-0
  7. IRBESARTAN. [Concomitant]
     Active Substance: IRBESARTAN
     Dosage: 600 MILLIGRAM DAILY; 300 MG, 1-0-1-0
  8. VELMETIA 50MG/1000MG [Concomitant]
     Dosage: 1000|50 MG, 1-0-1-0
  9. TORASEMID [Concomitant]
     Active Substance: TORSEMIDE
     Dosage: 10 MG, 0.5-0-0-0

REACTIONS (4)
  - Peripheral swelling [Unknown]
  - Skin irritation [Unknown]
  - Chest discomfort [Unknown]
  - Lip swelling [Unknown]
